FAERS Safety Report 11184921 (Version 6)
Quarter: 2015Q3

REPORT INFORMATION
  Report Type: Report from Study
  Country: CN (occurrence: CN)
  Receive Date: 20150612
  Receipt Date: 20150904
  Transmission Date: 20151125
  Serious: Yes (Death, Hospitalization)
  Sender: FDA-Public Use
  Company Number: CN-ABBVIE-15K-035-1404850-00

PATIENT
  Age: 54 Year
  Sex: Female

DRUGS (6)
  1. CALCITRIOL. [Concomitant]
     Active Substance: CALCITRIOL
     Indication: PRODUCT USED FOR UNKNOWN INDICATION
     Dates: start: 20110804
  2. METHOTREXATE [Concomitant]
     Active Substance: METHOTREXATE
     Indication: PRODUCT USED FOR UNKNOWN INDICATION
     Dates: start: 20110804, end: 20130830
  3. HYDROXYCHLOROQUINE [Concomitant]
     Active Substance: HYDROXYCHLOROQUINE
     Indication: PRODUCT USED FOR UNKNOWN INDICATION
     Dates: start: 20110920, end: 20130311
  4. ETORICOXIB [Concomitant]
     Active Substance: ETORICOXIB
     Indication: PRODUCT USED FOR UNKNOWN INDICATION
     Dates: start: 20140430, end: 20150416
  5. D-CAL [Concomitant]
     Active Substance: CALCIUM CARBONATE
     Indication: PRODUCT USED FOR UNKNOWN INDICATION
     Dates: start: 20110804
  6. HUMIRA [Suspect]
     Active Substance: ADALIMUMAB
     Indication: ANKYLOSING SPONDYLITIS
     Route: 058
     Dates: start: 20110812, end: 20150428

REACTIONS (9)
  - Dizziness [Fatal]
  - Disseminated intravascular coagulation [Fatal]
  - Cerebrovascular disorder [Fatal]
  - Cerebral haemorrhage [Fatal]
  - Erythroleukaemia [Fatal]
  - Septic shock [Fatal]
  - Loss of consciousness [Fatal]
  - Nausea [Fatal]
  - Lung infection [Fatal]

NARRATIVE: CASE EVENT DATE: 20150501
